FAERS Safety Report 6666462-4 (Version None)
Quarter: 2010Q2

REPORT INFORMATION
  Report Type: 
  Country: None (occurrence: None)
  Receive Date: 20100402
  Receipt Date: 20100325
  Transmission Date: 20101027
  Serious: Yes (Hospitalization)
  Sender: FDA-Public Use
  Company Number: JP-ABBOTT-10P-087-0635312-00

PATIENT
  Age: 79 Year
  Sex: Male

DRUGS (6)
  1. LEUPROLIDE ACETATE [Suspect]
     Indication: PROSTATE CANCER STAGE IV
     Route: 058
     Dates: start: 20060514, end: 20061003
  2. BICALUTAMIDE [Concomitant]
     Indication: PROSTATE CANCER STAGE IV
     Route: 048
     Dates: start: 20060516, end: 20061031
  3. FOSFESTROL TETRASODIUM [Concomitant]
     Indication: PROSTATE CANCER STAGE IV
     Route: 048
     Dates: end: 20060515
  4. ESTRAMUSTINE PHOSPHATE SODIUM [Concomitant]
     Indication: PROSTATE CANCER STAGE IV
     Route: 048
     Dates: start: 20061031, end: 20061128
  5. LOXOPROFEN SODIUM [Concomitant]
     Indication: COMPRESSION FRACTURE
     Route: 048
     Dates: start: 20061022, end: 20061129
  6. REBAMIPIDE [Concomitant]
     Indication: COMPRESSION FRACTURE
     Route: 048
     Dates: start: 20061031, end: 20061129

REACTIONS (1)
  - HEPATIC FUNCTION ABNORMAL [None]
